FAERS Safety Report 4612210-9 (Version None)
Quarter: 2005Q1

REPORT INFORMATION
  Report Type: 
  Country: None (occurrence: None)
  Receive Date: 20050316
  Receipt Date: 20050225
  Transmission Date: 20050727
  Serious: Yes (Hospitalization, Other)
  Sender: FDA-Public Use
  Company Number: USA050291756

PATIENT
  Age: 75 Year
  Sex: Female

DRUGS (1)
  1. FORTEO [Suspect]
     Indication: OSTEOPOROSIS
     Dosage: 20 UG/ 1DAY
     Dates: start: 20050124, end: 20050220

REACTIONS (4)
  - ANGINA PECTORIS [None]
  - FATIGUE [None]
  - NAUSEA [None]
  - PHARMACEUTICAL PRODUCT COMPLAINT [None]
